FAERS Safety Report 9525211 (Version 1)
Quarter: 2013Q3

REPORT INFORMATION
  Report Type: Report from Study
  Country: GR (occurrence: GR)
  Receive Date: 20130916
  Receipt Date: 20130916
  Transmission Date: 20140515
  Serious: Yes (Other)
  Sender: FDA-Public Use
  Company Number: PHHY2013GR101711

PATIENT
  Sex: 0

DRUGS (1)
  1. LDT600 [Suspect]
     Dosage: UNK

REACTIONS (1)
  - Leukopenia [Recovered/Resolved]
